FAERS Safety Report 21488754 (Version 3)
Quarter: 2022Q4

REPORT INFORMATION
  Report Type: Report from Study
  Country: US (occurrence: US)
  Receive Date: 20221021
  Receipt Date: 20221221
  Transmission Date: 20230113
  Serious: No
  Sender: FDA-Public Use
  Company Number: US-NOVARTISTESTPH-NVSC2022US237167

PATIENT
  Sex: Female

DRUGS (1)
  1. ENTRESTO [Suspect]
     Active Substance: SACUBITRIL\VALSARTAN
     Indication: Product used for unknown indication
     Dosage: 1.5 DOSAGE FORM, BID (49.51 MG)
     Route: 048
     Dates: start: 20220916

REACTIONS (6)
  - Cough [Unknown]
  - Dizziness [Unknown]
  - Weight increased [Unknown]
  - Vulvovaginal mycotic infection [Recovering/Resolving]
  - Nasopharyngitis [Unknown]
  - Wrong technique in product usage process [Unknown]
